FAERS Safety Report 14728636 (Version 1)
Quarter: 2018Q2

REPORT INFORMATION
  Report Type: Spontaneous
  Country: CH (occurrence: CH)
  Receive Date: 20180406
  Receipt Date: 20180406
  Transmission Date: 20180711
  Serious: Yes (Hospitalization, Disabling, Other)
  Sender: FDA-Public Use
  Company Number: CH-TEVA-2018-CH-876890

PATIENT
  Age: 26 Year
  Sex: Male

DRUGS (13)
  1. COPAXONE [Suspect]
     Active Substance: GLATIRAMER ACETATE
     Indication: MULTIPLE SCLEROSIS
     Dosage: 20 MILLIGRAM DAILY;
     Route: 058
     Dates: start: 201308, end: 201402
  2. CIALIS [Concomitant]
     Active Substance: TADALAFIL
     Dates: start: 201311, end: 201403
  3. DRONABINOL. [Concomitant]
     Active Substance: DRONABINOL
     Dates: start: 201702
  4. GILENYA [Suspect]
     Active Substance: FINGOLIMOD HYDROCHLORIDE
     Route: 048
     Dates: start: 201403, end: 201404
  5. AMANTADIN [Suspect]
     Active Substance: AMANTADINE
     Indication: FATIGUE
     Dates: start: 201312, end: 201406
  6. ASPEGIC [Concomitant]
     Active Substance: ASPIRIN DL-LYSINE
     Dates: start: 201412, end: 201412
  7. VENLAFAXIN [Concomitant]
     Active Substance: VENLAFAXINE HYDROCHLORIDE
     Dates: start: 201404, end: 2015
  8. ISONIAZID. [Concomitant]
     Active Substance: ISONIAZID
     Dates: start: 201405, end: 201502
  9. VITAMIN 15 [Concomitant]
     Dates: start: 201511
  10. BETAFERON [Suspect]
     Active Substance: INTERFERON BETA-1B
     Indication: MULTIPLE SCLEROSIS
     Route: 058
     Dates: start: 201407, end: 201502
  11. CANNABIS [Suspect]
     Active Substance: CANNABIS SATIVA SUBSP. INDICA TOP
     Indication: DRUG ABUSE
     Route: 055
     Dates: start: 2001
  12. VITAMIN D [Concomitant]
     Active Substance: CHOLECALCIFEROL
     Dates: start: 201601, end: 201603
  13. PYRIDOXIN [Concomitant]
     Active Substance: PYRIDOXINE
     Dates: start: 201405, end: 201502

REACTIONS (18)
  - Dry mouth [Unknown]
  - Confusional state [Unknown]
  - Muscle spasticity [Recovered/Resolved]
  - Dyspnoea [Unknown]
  - Latent tuberculosis [Recovered/Resolved]
  - Bradycardia [Unknown]
  - Asthenia [Unknown]
  - Depression [Unknown]
  - Testis cancer [Not Recovered/Not Resolved]
  - Asthma [Recovered/Resolved]
  - Eye pain [Recovered/Resolved]
  - Diarrhoea [Recovered/Resolved]
  - Fatigue [Unknown]
  - Myalgia [Unknown]
  - Paraesthesia [Unknown]
  - Pyrexia [Unknown]
  - Drug ineffective [Unknown]
  - Arthralgia [Unknown]

NARRATIVE: CASE EVENT DATE: 201308
